FAERS Safety Report 9376154 (Version 4)
Quarter: 2013Q3

REPORT INFORMATION
  Report Type: Spontaneous
  Country: IE (occurrence: IE)
  Receive Date: 20130701
  Receipt Date: 20130730
  Transmission Date: 20140515
  Serious: Yes (Life-Threatening, Other)
  Sender: FDA-Public Use
  Company Number: IE-ROCHE-1242376

PATIENT
  Age: 59 Year
  Sex: Female

DRUGS (7)
  1. PERJETA [Suspect]
     Indication: BREAST CANCER METASTATIC
     Route: 065
  2. HERCEPTIN [Suspect]
     Indication: BREAST CANCER METASTATIC
     Route: 042
  3. HERCEPTIN [Suspect]
     Route: 042
  4. TAXOTERE [Suspect]
     Indication: BREAST CANCER METASTATIC
     Route: 065
  5. CARBOPLATIN [Suspect]
     Indication: BREAST CANCER METASTATIC
     Dosage: AUC 6
     Route: 065
  6. NEULASTA [Concomitant]
     Route: 065
  7. DOMPERIDONE [Concomitant]
     Route: 065

REACTIONS (5)
  - Sepsis [Recovering/Resolving]
  - Diarrhoea [Recovered/Resolved]
  - Febrile neutropenia [Recovering/Resolving]
  - Colitis [Recovering/Resolving]
  - Retching [Recovering/Resolving]
